FAERS Safety Report 7313869-8 (Version None)
Quarter: 2011Q1

REPORT INFORMATION
  Report Type: 
  Country: None (occurrence: None)
  Receive Date: 20110225
  Receipt Date: 20110221
  Transmission Date: 20110831
  Serious: Yes (Death)
  Sender: FDA-Public Use
  Company Number: CZ-CELGENEUS-217-C5013-11022006

PATIENT
  Sex: Male
  Weight: 77 kg

DRUGS (4)
  1. CC-5013 [Suspect]
     Indication: MULTIPLE MYELOMA
     Route: 048
     Dates: start: 20071206, end: 20080903
  2. PREDNISONE [Suspect]
     Indication: MULTIPLE MYELOMA
     Route: 048
     Dates: start: 20071206, end: 20080817
  3. MELPHALAN HYDROCHLORIDE [Suspect]
     Indication: MULTIPLE MYELOMA
     Route: 048
     Dates: start: 20071206, end: 20080817
  4. PLACEBO FOR CC-5013 [Suspect]
     Indication: MULTIPLE MYELOMA
     Dates: end: 20080903

REACTIONS (1)
  - MYELODYSPLASTIC SYNDROME [None]
